FAERS Safety Report 8150184-7 (Version None)
Quarter: 2012Q1

REPORT INFORMATION
  Report Type: 
  Country: None (occurrence: None)
  Receive Date: 20120220
  Receipt Date: 20120214
  Transmission Date: 20120608
  Serious: No
  Sender: FDA-Public Use
  Company Number: US-PFIZER INC-2011302068

PATIENT
  Sex: Female

DRUGS (7)
  1. VENLAFAXINE HYDROCHLORIDE [Suspect]
     Dosage: UNK
  2. CELEBREX [Concomitant]
     Dosage: UNK
  3. EFFEXOR XR [Suspect]
     Indication: ANXIETY
  4. ESTRADIOL [Concomitant]
     Dosage: UNK
  5. THYROID [Concomitant]
     Dosage: UNK
  6. EFFEXOR XR [Suspect]
     Indication: DEPRESSION
     Dosage: 150 MG, DAILY
     Route: 048
     Dates: start: 20110620, end: 20111128
  7. ZOVIRAX [Concomitant]
     Dosage: UNK

REACTIONS (4)
  - DRUG WITHDRAWAL SYNDROME [None]
  - TREMOR [None]
  - HYPERHIDROSIS [None]
  - DIZZINESS [None]
